FAERS Safety Report 8335068-3 (Version None)
Quarter: 2012Q2

REPORT INFORMATION
  Report Type: 
  Country: None (occurrence: None)
  Receive Date: 20120503
  Receipt Date: 20120418
  Transmission Date: 20120825
  Serious: No
  Sender: FDA-Public Use
  Company Number: US-COVIDIEN/TYCO HEALTHCARE/MALLINCKRODT-T201201478

PATIENT
  Sex: Female

DRUGS (4)
  1. FENTANYL CITRATE [Suspect]
     Indication: MIGRAINE
     Dosage: 600 MCG PRN
     Dates: start: 20120101, end: 20120411
  2. AMBIEN [Concomitant]
     Indication: SLEEP DISORDER
     Dosage: UNK
  3. XANAX [Concomitant]
     Indication: ANXIETY
     Dosage: UNK
  4. ZOFRAN [Concomitant]
     Indication: NAUSEA
     Dosage: UNK

REACTIONS (4)
  - DENTAL CARIES [None]
  - TREATMENT NONCOMPLIANCE [None]
  - DRUG DEPENDENCE [None]
  - WITHDRAWAL SYNDROME [None]
